FAERS Safety Report 5611833-8 (Version None)
Quarter: 2008Q1

REPORT INFORMATION
  Report Type: 
  Country: None (occurrence: None)
  Receive Date: 20080204
  Receipt Date: 20080124
  Transmission Date: 20080703
  Serious: Yes (Hospitalization, Other)
  Sender: FDA-Public Use
  Company Number: NZ-JNJFOC-20071201178

PATIENT
  Sex: Female

DRUGS (1)
  1. RISPERDAL CONSTA [Suspect]
     Indication: PSYCHOTIC DISORDER

REACTIONS (1)
  - MULTIPLE SCLEROSIS [None]
